FAERS Safety Report 25408640 (Version 1)
Quarter: 2025Q2

REPORT INFORMATION
  Report Type: Report from Study
  Country: US (occurrence: US)
  Receive Date: 20250606
  Receipt Date: 20250606
  Transmission Date: 20250717
  Serious: Yes (Other)
  Sender: ALEXION PHARMACEUTICALS
  Company Number: 202504USA003181US

PATIENT

DRUGS (1)
  1. OSIMERTINIB [Suspect]
     Active Substance: OSIMERTINIB
     Indication: Lung carcinoma cell type unspecified stage I
     Dosage: 40 MILLIGRAM, QD

REACTIONS (5)
  - Dyspnoea [Unknown]
  - Amnesia [Unknown]
  - Disturbance in attention [Unknown]
  - Muscular weakness [Unknown]
  - Fatigue [Unknown]
